FAERS Safety Report 11746245 (Version 1)
Quarter: 2015Q4

REPORT INFORMATION
  Report Type: Spontaneous
  Country: CH (occurrence: CH)
  Receive Date: 20151117
  Receipt Date: 20151117
  Transmission Date: 20160304
  Serious: Yes (Other)
  Sender: FDA-Public Use
  Company Number: CH-HERITAGE PHARMACEUTICALS-2015HTG00056

PATIENT
  Age: 50 Year
  Sex: Male

DRUGS (1)
  1. LEFLUNOMIDE. [Suspect]
     Active Substance: LEFLUNOMIDE
     Indication: CYTOMEGALOVIRUS INFECTION
     Dosage: 20 MG, 2X/DAY

REACTIONS (2)
  - Orthostatic hypotension [Recovered/Resolved]
  - Polyneuropathy [Recovered/Resolved]
